FAERS Safety Report 5253662-3 (Version None)
Quarter: 2007Q1

REPORT INFORMATION
  Report Type: 
  Country: None (occurrence: None)
  Receive Date: 20070301
  Receipt Date: 20070219
  Transmission Date: 20070707
  Serious: Yes (Other)
  Sender: FDA-Public Use
  Company Number: JP-PFIZER INC-2007014056

PATIENT

DRUGS (3)
  1. GABAPEN [Suspect]
     Indication: EPILEPSY
     Route: 048
  2. ANTIEPILEPTICS [Concomitant]
  3. CLOBAZAM [Concomitant]
     Route: 048

REACTIONS (3)
  - EPILEPSY [None]
  - FACE INJURY [None]
  - FALL [None]
